FAERS Safety Report 7190378-0 (Version None)
Quarter: 2010Q4

REPORT INFORMATION
  Report Type: 
  Country: None (occurrence: None)
  Receive Date: 20101221
  Receipt Date: 20101221
  Transmission Date: 20110411
  Serious: Yes (Life-Threatening, Other)
  Sender: FDA-Public Use
  Company Number: None

PATIENT
  Age: 50 Year
  Sex: Male
  Weight: 95.2554 kg

DRUGS (1)
  1. DARVOCET-N 100 [Suspect]
     Indication: PAIN
     Dosage: 100-650 5 TIME A DAY

REACTIONS (2)
  - ANGINA PECTORIS [None]
  - PAIN IN EXTREMITY [None]
